FAERS Safety Report 7228114-1 (Version None)
Quarter: 2011Q1

REPORT INFORMATION
  Report Type: 
  Country: None (occurrence: None)
  Receive Date: 20110114
  Receipt Date: 20110111
  Transmission Date: 20110831
  Serious: Yes (Other)
  Sender: FDA-Public Use
  Company Number: IT-PFIZER INC-2010179424

PATIENT
  Age: 11 Year
  Sex: Male

DRUGS (1)
  1. REFACTO [Suspect]

REACTIONS (2)
  - FACTOR VIII INHIBITION [None]
  - DRUG INEFFECTIVE [None]
